FAERS Safety Report 4478307-1 (Version None)
Quarter: 2004Q4

REPORT INFORMATION
  Report Type: 
  Country: None (occurrence: None)
  Receive Date: 20041019
  Receipt Date: 20041008
  Transmission Date: 20050328
  Serious: Yes (Other)
  Sender: FDA-Public Use
  Company Number: US-ROCHE-383014

PATIENT
  Age: 49 Year
  Sex: Male

DRUGS (1)
  1. FUZEON [Suspect]
     Indication: DRUG USE FOR UNKNOWN INDICATION
     Dosage: STOP DATE OF ENFUVIRTIDE: OCTOBER 2004.
     Route: 065
     Dates: start: 20040715

REACTIONS (1)
  - PNEUMONIA [None]
